FAERS Safety Report 9246201 (Version 7)
Quarter: 2015Q2

REPORT INFORMATION
  Report Type: Report from Study
  Country: ES (occurrence: ES)
  Receive Date: 20130422
  Receipt Date: 20150506
  Transmission Date: 20150821
  Serious: Yes (Death, Other)
  Sender: FDA-Public Use
  Company Number: ES-ROCHE-1215298

PATIENT

DRUGS (4)
  1. RIBAVIRIN. [Suspect]
     Active Substance: RIBAVIRIN
     Indication: HEPATITIS C
     Route: 048
  2. PEG-INTERFERON ALFA 2A [Suspect]
     Active Substance: PEGINTERFERON ALFA-2A
     Indication: HEPATITIS C
     Route: 065
  3. BOCEPREVIR [Suspect]
     Active Substance: BOCEPREVIR
     Indication: HEPATITIS C
     Route: 065
  4. PEGINTERFERON ALFA-2B [Suspect]
     Active Substance: PEGINTERFERON ALFA-2B
     Indication: HEPATITIS C
     Route: 065

REACTIONS (8)
  - Septic shock [Fatal]
  - Neutropenia [Unknown]
  - Thrombocytopenia [Unknown]
  - Pneumonia [Fatal]
  - Anaemia [Unknown]
  - Multi-organ failure [Fatal]
  - Infection [Unknown]
  - Hepatic failure [Unknown]
